FAERS Safety Report 7665345-0 (Version None)
Quarter: 2011Q3

REPORT INFORMATION
  Report Type: 
  Country: None (occurrence: None)
  Receive Date: 20110806
  Receipt Date: 20110304
  Transmission Date: 20111222
  Serious: No
  Sender: FDA-Public Use
  Company Number: US-ABBOTT-11P-163-0709563-00

PATIENT
  Sex: Male
  Weight: 95.34 kg

DRUGS (7)
  1. NIASPAN [Suspect]
     Indication: BLOOD CHOLESTEROL INCREASED
     Dosage: AT BEDTIME
     Route: 048
     Dates: start: 20101101
  2. ASPIRIN [Concomitant]
     Indication: CARDIAC DISORDER
     Dosage: IN THE MORNING
  3. NIASPAN [Suspect]
     Indication: HIGH DENSITY LIPOPROTEIN DECREASED
     Dosage: AT BEDTIME
     Route: 048
     Dates: start: 20100901, end: 20101101
  4. AMLODIPINE [Concomitant]
     Indication: HYPERTENSION
  5. METOPROLOL TARTRATE [Concomitant]
     Indication: HYPERTENSION
  6. PLAVIX [Concomitant]
     Indication: CORONARY ARTERIAL STENT INSERTION
  7. HYDROCHLOROTHIAZIDE [Concomitant]
     Indication: HYPERTENSION

REACTIONS (4)
  - FEELING HOT [None]
  - PRURITUS [None]
  - ERYTHEMA [None]
  - FLUSHING [None]
